FAERS Safety Report 17045179 (Version 2)
Quarter: 2019Q4

REPORT INFORMATION
  Report Type: Report from Study
  Country: RU (occurrence: RU)
  Receive Date: 20191118
  Receipt Date: 20191121
  Transmission Date: 20200122
  Serious: Yes (Hospitalization)
  Sender: FDA-Public Use
  Company Number: RU-PFIZER INC-2019492154

PATIENT
  Age: 60 Year
  Sex: Female
  Weight: 76.4 kg

DRUGS (15)
  1. ESSENTIALE FORTE [Concomitant]
     Dosage: 1 DF, UNK
     Dates: start: 20180418
  2. PROTAPHANE [Concomitant]
     Active Substance: INSULIN HUMAN
     Dosage: 10 DF, UNK
     Dates: start: 20181125
  3. LIDOCAINE. [Concomitant]
     Active Substance: LIDOCAINE
     Dosage: 2 %, UNK (TOPICAL SOLUTION)
     Route: 061
     Dates: start: 20180307
  4. GLURENORM [Concomitant]
     Active Substance: GLIQUIDONE
     Dosage: 30 MG, UNK
     Dates: start: 20181125
  5. EUTHYROX [Concomitant]
     Active Substance: LEVOTHYROXINE SODIUM
     Dosage: 75 MG, UNK
     Dates: start: 20160212
  6. TANTUM [BENZYDAMINE HYDROCHLORIDE] [Concomitant]
     Dosage: 15 ML, UNK (TOPICAL SOLUTION)
     Route: 061
     Dates: start: 20180307
  7. NOLIPREL A BI FORTE [Concomitant]
     Dosage: 10 MG, UNK
     Dates: start: 20160902
  8. CONCOR [Concomitant]
     Active Substance: BISOPROLOL FUMARATE
     Dosage: 5 MG, UNK
     Dates: start: 20000902
  9. CLOPIDOGREL [Concomitant]
     Active Substance: CLOPIDOGREL BISULFATE
     Dosage: 75 MG, UNK
     Dates: start: 20180902
  10. UREA. [Concomitant]
     Active Substance: UREA
     Dosage: 10 %, UNK
     Dates: start: 20180307
  11. SUNITINIB MALATE. [Suspect]
     Active Substance: SUNITINIB MALATE
     Dosage: 25 MG, CYCLIC (ONCE DAILY FOR 4 WEEKS AND THEN OFF TREATMENT FOR 2 WEEKS)
     Route: 048
     Dates: start: 20190827, end: 20190923
  12. SOLCOSERYL [Concomitant]
     Active Substance: SOLCOSERYL
     Dosage: 1 DF, UNK
     Dates: start: 20180307
  13. SUNITINIB MALATE. [Suspect]
     Active Substance: SUNITINIB MALATE
     Indication: RENAL CELL CARCINOMA
     Dosage: 50 MG, CYCLIC (ONCE DAILY FOR 4 WEEKS AND THEN OFF TREATMENT FOR 2 WEEKS, FLUCTUATED DOSAGE)
     Route: 048
     Dates: start: 20170207, end: 20190812
  14. MIRAMISTIN [Concomitant]
     Active Substance: MIRAMISTIN
     Dosage: UNK (TOPICAL SOLUTION)
     Route: 061
     Dates: start: 20190713
  15. MOXONIDINE [Concomitant]
     Active Substance: MOXONIDINE
     Dosage: 0.2 MG, UNK
     Dates: start: 20160902

REACTIONS (1)
  - Benign breast neoplasm [Recovered/Resolved]

NARRATIVE: CASE EVENT DATE: 20190902
